FAERS Safety Report 12297487 (Version 1)
Quarter: 2016Q2

REPORT INFORMATION
  Report Type: Spontaneous
  Country: US (occurrence: US)
  Receive Date: 20160422
  Receipt Date: 20160422
  Transmission Date: 20160815
  Serious: Yes (Hospitalization)
  Sender: FDA-Public Use
  Company Number: C15-068 ROPINIROLE

PATIENT
  Age: 62 Year
  Sex: Male
  Weight: 104.55 kg

DRUGS (3)
  1. CARBIDOPA AND LEVODOPA [Suspect]
     Active Substance: CARBIDOPA\LEVODOPA
     Route: 065
  2. ROPINIROLE HYDROCHLORIDE. [Suspect]
     Active Substance: ROPINIROLE HYDROCHLORIDE
     Indication: PARKINSON^S DISEASE
  3. EXELON [Suspect]
     Active Substance: RIVASTIGMINE TARTRATE
     Route: 065

REACTIONS (8)
  - Fall [Recovered/Resolved]
  - Haemorrhage intracranial [Recovered/Resolved]
  - Acute prerenal failure [Recovered/Resolved]
  - Dehydration [Recovered/Resolved]
  - Facial bones fracture [Recovered/Resolved]
  - Overdose [Recovered/Resolved]
  - Soft tissue disorder [Recovered/Resolved]
  - Syncope [Recovered/Resolved]

NARRATIVE: CASE EVENT DATE: 20140210
